FAERS Safety Report 20721590 (Version 1)
Quarter: 2022Q2

REPORT INFORMATION
  Report Type: Spontaneous
  Country: US (occurrence: US)
  Receive Date: 20220418
  Receipt Date: 20220418
  Transmission Date: 20220720
  Serious: Yes (Hospitalization, Other)
  Sender: FDA-Public Use
  Company Number: US-BAYER-2022A054212

PATIENT
  Age: 61 Year
  Sex: Female

DRUGS (2)
  1. REGORAFENIB [Suspect]
     Active Substance: REGORAFENIB
     Indication: Adenocarcinoma of colon
     Dosage: 80 MG, QD
  2. REGORAFENIB [Suspect]
     Active Substance: REGORAFENIB
     Indication: Adenocarcinoma of colon
     Dosage: 40 MG, QD

REACTIONS (6)
  - Acute kidney injury [Not Recovered/Not Resolved]
  - Blood creatinine increased [None]
  - Blood urea increased [None]
  - Toxicity to various agents [None]
  - Rash [Recovering/Resolving]
  - Off label use [None]
